FAERS Safety Report 10051428 (Version 1)
Quarter: 2014Q2

REPORT INFORMATION
  Report Type: Spontaneous
  Country: US (occurrence: US)
  Receive Date: 20140401
  Receipt Date: 20140401
  Transmission Date: 20141212
  Serious: No
  Sender: FDA-Public Use
  Company Number: US-PFIZER INC-2014090726

PATIENT
  Sex: Female

DRUGS (3)
  1. GEODON [Suspect]
     Dosage: 180 MG, UNK
  2. GEODON [Suspect]
     Dosage: 40 MG, 2X/DAY
  3. GEODON [Suspect]
     Dosage: 20 MG, 2X/DAY

REACTIONS (4)
  - Malaise [Unknown]
  - Chills [Unknown]
  - Hyperhidrosis [Unknown]
  - Somnolence [Unknown]
